FAERS Safety Report 25039984 (Version 1)
Quarter: 2025Q1

REPORT INFORMATION
  Report Type: Spontaneous
  Country: ES (occurrence: ES)
  Receive Date: 20250305
  Receipt Date: 20250305
  Transmission Date: 20250409
  Serious: Yes (Death, Life-Threatening, Hospitalization, Other)
  Sender: Haleon PLC
  Company Number: ES-HALEON-2187392

PATIENT
  Age: 42 Year
  Sex: Male

DRUGS (4)
  1. DICLOFENAC [Suspect]
     Active Substance: DICLOFENAC
     Indication: Arthralgia
     Route: 030
     Dates: start: 20231015, end: 20231015
  2. DICLOFENAC [Suspect]
     Active Substance: DICLOFENAC
     Indication: Arthralgia
  3. METAMIZOLE MAGNESIUM [Suspect]
     Active Substance: METAMIZOLE MAGNESIUM
     Indication: Arthralgia
     Route: 030
     Dates: start: 20231015, end: 20231015
  4. METAMIZOLE MAGNESIUM [Suspect]
     Active Substance: METAMIZOLE MAGNESIUM
     Indication: Arthralgia

REACTIONS (8)
  - Coma [Fatal]
  - Cellulitis [Fatal]
  - Sepsis [Fatal]
  - Swelling [Unknown]
  - White blood cell count [Fatal]
  - Septic shock [Fatal]
  - Blister [Fatal]
  - Multiple organ dysfunction syndrome [Fatal]

NARRATIVE: CASE EVENT DATE: 20231015
